FAERS Safety Report 13822303 (Version 1)
Quarter: 2017Q3

REPORT INFORMATION
  Report Type: Spontaneous
  Country: US (occurrence: US)
  Receive Date: 20170801
  Receipt Date: 20170801
  Transmission Date: 20171127
  Serious: No
  Sender: FDA-Public Use
  Company Number: US-IMPAX LABORATORIES, INC-2016-IPXL-02260

PATIENT
  Age: 73 Year
  Sex: Female
  Weight: 90 kg

DRUGS (5)
  1. ALBENZA [Suspect]
     Active Substance: ALBENDAZOLE
     Indication: ENTEROBIASIS
     Dosage: 400 MG, SINGLE
     Route: 048
     Dates: start: 20161112, end: 20161112
  2. SYNTHROID [Concomitant]
     Active Substance: LEVOTHYROXINE SODIUM
     Indication: THYROID DISORDER
     Dosage: 75 ?G, 1 /DAY
     Route: 048
  3. ATACAND [Concomitant]
     Active Substance: CANDESARTAN CILEXETIL
     Indication: HYPERTENSION
     Dosage: 16 MG, 2 /DAY
     Route: 048
  4. METOPROLOL. [Concomitant]
     Active Substance: METOPROLOL
     Indication: HYPERTENSION
     Dosage: 25 MG, 1 /DAY
     Route: 048
  5. ALBENZA [Suspect]
     Active Substance: ALBENDAZOLE
     Dosage: 400 MG, SINGLE
     Route: 048
     Dates: start: 201611

REACTIONS (2)
  - Drug ineffective for unapproved indication [Unknown]
  - Inability to afford medication [Unknown]

NARRATIVE: CASE EVENT DATE: 201611
